FAERS Safety Report 21969083 (Version 1)
Quarter: 2023Q1

REPORT INFORMATION
  Report Type: Spontaneous
  Country: CH (occurrence: CH)
  Receive Date: 20230208
  Receipt Date: 20230208
  Transmission Date: 20230417
  Serious: Yes (Hospitalization, Other)
  Sender: FDA-Public Use
  Company Number: None

PATIENT
  Age: 65 Year
  Sex: Male

DRUGS (2)
  1. YERVOY [Suspect]
     Active Substance: IPILIMUMAB
     Indication: Product used for unknown indication
     Dosage: CYCLICAL
     Route: 041
     Dates: start: 20220817, end: 20220928
  2. OPDIVO [Suspect]
     Active Substance: NIVOLUMAB
     Indication: Product used for unknown indication
     Dosage: CYCLICAL
     Route: 041
     Dates: start: 20220817, end: 20220928

REACTIONS (3)
  - Hypophysitis [Recovering/Resolving]
  - Diabetes mellitus [Recovering/Resolving]
  - Immune-mediated endocrinopathy [Recovering/Resolving]

NARRATIVE: CASE EVENT DATE: 20221019
